FAERS Safety Report 23636453 (Version 1)
Quarter: 2024Q1

REPORT INFORMATION
  Report Type: Spontaneous
  Country: US (occurrence: None)
  Receive Date: 20240314
  Receipt Date: 20240314
  Transmission Date: 20240410
  Serious: Yes (Death)
  Sender: FDA-Public Use
  Company Number: None

PATIENT
  Age: 91 Year
  Sex: Female

DRUGS (1)
  1. FERRLECIT [Suspect]
     Active Substance: SODIUM FERRIC GLUCONATE COMPLEX
     Indication: Iron deficiency anaemia
     Route: 041
     Dates: start: 20240312, end: 20240312

REACTIONS (8)
  - Confusional state [None]
  - Somnolence [None]
  - Cold sweat [None]
  - Hyperhidrosis [None]
  - Blood pressure decreased [None]
  - Oxygen saturation decreased [None]
  - Infusion related reaction [None]
  - Acute myocardial infarction [None]

NARRATIVE: CASE EVENT DATE: 20240312
